FAERS Safety Report 8564503-0 (Version None)
Quarter: 2012Q3

REPORT INFORMATION
  Report Type: 
  Country: None (occurrence: None)
  Receive Date: 20120803
  Receipt Date: 20120726
  Transmission Date: 20120928
  Serious: Yes (Hospitalization)
  Sender: FDA-Public Use
  Company Number: TW-SANOFI-AVENTIS-2011SA081427

PATIENT
  Age: 72 Year
  Sex: Male

DRUGS (4)
  1. DOCETAXEL [Suspect]
     Indication: NON-SMALL CELL LUNG CANCER
     Route: 042
     Dates: start: 20111108, end: 20111108
  2. CARBOPLATIN [Suspect]
     Dosage: DOSE:2 UNIT(S)
     Route: 042
     Dates: start: 20111213, end: 20111213
  3. DOCETAXEL [Suspect]
     Route: 042
     Dates: start: 20111213, end: 20111213
  4. CARBOPLATIN [Suspect]
     Indication: NON-SMALL CELL LUNG CANCER
     Dosage: DOSE:2 UNIT(S)
     Route: 042
     Dates: start: 20111108, end: 20111108

REACTIONS (1)
  - THALASSAEMIA [None]
